FAERS Safety Report 16907514 (Version 1)
Quarter: 2019Q4

REPORT INFORMATION
  Report Type: Report from Study
  Country: RO (occurrence: RO)
  Receive Date: 20191011
  Receipt Date: 20191011
  Transmission Date: 20200122
  Serious: Yes (Life-Threatening, Hospitalization, Other)
  Sender: FDA-Public Use
  Company Number: RO-ACCORD-157066

PATIENT

DRUGS (4)
  1. CYTARABINE/CYTARABINE HYDROCHLORIDE/CYTARABINE OCFOSFATE [Suspect]
     Active Substance: CYTARABINE
     Indication: LYMPHOMA
     Dosage: 1,600 MG/M2 (TOTAL DOSE), TWICE DAILY DIVIDED OVER 4 DAYS FROM DAYS 5 TO 2
     Route: 042
  2. LOMUSTINE. [Suspect]
     Active Substance: LOMUSTINE
     Indication: LYMPHOMA
     Dosage: P.O. ON DAY-6
     Route: 048
  3. MELPHALAN. [Suspect]
     Active Substance: MELPHALAN
     Indication: LYMPHOMA
     Dosage: 140 MG/M2 (TOTAL DOSE), ON DAY-1
     Route: 042
  4. ETOPOSIDE. [Suspect]
     Active Substance: ETOPOSIDE
     Indication: LYMPHOMA
     Dosage: 800 MG/M2 (TOTAL DOSE), DIVIDED OVER 4 DAYS FROM DAYS 5 TO 2
     Route: 042

REACTIONS (5)
  - Neutropenia [Unknown]
  - Anaemia [Unknown]
  - Pleurisy [Unknown]
  - Thrombocytopenia [Unknown]
  - Off label use [Unknown]
